FAERS Safety Report 6567890-8 (Version None)
Quarter: 2010Q1

REPORT INFORMATION
  Report Type: 
  Country: None (occurrence: None)
  Receive Date: 20100203
  Receipt Date: 20100126
  Transmission Date: 20100710
  Serious: Yes (Hospitalization)
  Sender: FDA-Public Use
  Company Number: PHHY2009JP53130

PATIENT
  Age: 16 Year
  Sex: Female

DRUGS (2)
  1. TEGRETOL [Suspect]
     Indication: EPILEPSY
     Dosage: UNK
     Route: 048
  2. ITRIZOLE [Concomitant]
     Indication: OESOPHAGEAL CANDIDIASIS
     Dosage: UNK
     Dates: end: 20091130

REACTIONS (3)
  - MUSCULAR WEAKNESS [None]
  - OESOPHAGEAL CANDIDIASIS [None]
  - TREMOR [None]
